APPROVED DRUG PRODUCT: NEOSTIGMINE METHYLSULFATE
Active Ingredient: NEOSTIGMINE METHYLSULFATE
Strength: 5MG/10ML (0.5MG/ML)
Dosage Form/Route: SOLUTION;INTRAVENOUS
Application: A209182 | Product #001
Applicant: AMERICAN REGENT INC
Approved: May 4, 2018 | RLD: No | RS: No | Type: DISCN